FAERS Safety Report 17679757 (Version 1)
Quarter: 2020Q2

REPORT INFORMATION
  Report Type: Spontaneous
  Country: US (occurrence: US)
  Receive Date: 20200417
  Receipt Date: 20200417
  Transmission Date: 20200714
  Serious: No
  Sender: FDA-Public Use
  Company Number: US-SA-2020SA100161

PATIENT
  Age: 34 Year
  Sex: Female

DRUGS (1)
  1. DUPIXENT [Suspect]
     Active Substance: DUPILUMAB
     Indication: IDIOPATHIC URTICARIA
     Dosage: 300 MG, QOW
     Route: 058
     Dates: start: 20191024

REACTIONS (4)
  - Sleep disorder [Not Recovered/Not Resolved]
  - Urticaria [Not Recovered/Not Resolved]
  - Product use in unapproved indication [Unknown]
  - Product dose omission [Unknown]

NARRATIVE: CASE EVENT DATE: 20191024
